FAERS Safety Report 4540986-8 (Version None)
Quarter: 2004Q4

REPORT INFORMATION
  Report Type: 
  Country: None (occurrence: None)
  Receive Date: 20041228
  Receipt Date: 20041215
  Transmission Date: 20050328
  Serious: Yes (Hospitalization)
  Sender: FDA-Public Use
  Company Number: 2004CG02528

PATIENT
  Age: 70 Year
  Sex: Male

DRUGS (4)
  1. CRESTOR [Suspect]
     Indication: HYPERCHOLESTEROLAEMIA
     Dosage: 10 MG QD PO
     Route: 048
     Dates: start: 20040502, end: 20041202
  2. MOPRAL [Concomitant]
  3. GLUCOPHAGE [Concomitant]
  4. DIAMICRON [Concomitant]

REACTIONS (3)
  - MALAISE [None]
  - SOMNOLENCE [None]
  - SUDDEN ONSET OF SLEEP [None]
